FAERS Safety Report 16526699 (Version 1)
Quarter: 2019Q3

REPORT INFORMATION
  Report Type: Spontaneous
  Country: US (occurrence: US)
  Receive Date: 20190704
  Receipt Date: 20190704
  Transmission Date: 20191004
  Serious: Yes (Other)
  Sender: FDA-Public Use
  Company Number: US-TEVA-2019-US-1069699

PATIENT
  Sex: Female

DRUGS (22)
  1. SYNRIBO [Suspect]
     Active Substance: OMACETAXINE MEPESUCCINATE
     Indication: CHRONIC MYELOID LEUKAEMIA
     Dosage: DOSAGE: 2.0MG/0.57ML; DAILY FOR 14 DAYS
     Route: 065
     Dates: start: 20190604
  2. ARMOUR THYROID [Concomitant]
     Active Substance: THYROID, PORCINE
  3. HOMOCYSTEINE SUPPORT [Concomitant]
  4. METOPROLOL. [Concomitant]
     Active Substance: METOPROLOL
  5. VITAMIN C [Concomitant]
     Active Substance: ASCORBIC ACID
  6. XARELTO [Concomitant]
     Active Substance: RIVAROXABAN
  7. LATANOPROST. [Concomitant]
     Active Substance: LATANOPROST
  8. VITAMIN D3 [Concomitant]
     Active Substance: CHOLECALCIFEROL
  9. RIBOFLAVIN [Concomitant]
     Active Substance: RIBOFLAVIN
  10. COENZYME Q10 [Concomitant]
     Active Substance: UBIDECARENONE
  11. OMEGA 3 [Concomitant]
     Active Substance: OMEGA-3 FATTY ACIDS
  12. METHOCARBAM [Concomitant]
     Active Substance: METHOCARBAMOL
  13. ACETYLCYST [Concomitant]
  14. VITAMIN E [Concomitant]
     Active Substance: .ALPHA.-TOCOPHEROL
  15. VITAMIN B12 [Concomitant]
     Active Substance: CYANOCOBALAMIN
  16. PROBIOTIC [Concomitant]
     Active Substance: PROBIOTICS NOS
  17. MILK THISTLE [Concomitant]
     Active Substance: DIETARY SUPPLEMENT\HERBALS\MILK THISTLE
  18. SELENIUM [Concomitant]
     Active Substance: SELENIUM
  19. MELATONIN [Concomitant]
     Active Substance: MELATONIN
  20. COLOSTRUM [Concomitant]
     Active Substance: DIETARY SUPPLEMENT
  21. DHEA [Concomitant]
     Active Substance: PRASTERONE
  22. MAGNESIUM [Concomitant]
     Active Substance: MAGNESIUM

REACTIONS (2)
  - Cardiac failure congestive [Unknown]
  - Haemoglobin decreased [Unknown]
